FAERS Safety Report 6769216-3 (Version None)
Quarter: 2010Q2

REPORT INFORMATION
  Report Type: 
  Country: None (occurrence: None)
  Receive Date: 20100615
  Receipt Date: 20100531
  Transmission Date: 20101027
  Serious: Yes (Hospitalization)
  Sender: FDA-Public Use
  Company Number: IT-BAYER-201026719GPV

PATIENT
  Age: 34 Year
  Sex: Female

DRUGS (10)
  1. CAMPATH [Suspect]
     Indication: PERIPHERAL T-CELL LYMPHOMA UNSPECIFIED
     Dosage: DAY 1
     Dates: start: 20100326
  2. DOXORUBICIN HCL [Suspect]
     Indication: PERIPHERAL T-CELL LYMPHOMA UNSPECIFIED
     Dosage: DAY 1
     Dates: start: 20100326
  3. VINCRISTINE [Suspect]
     Indication: PERIPHERAL T-CELL LYMPHOMA UNSPECIFIED
     Dosage: DAY 1, (MAXIMUM 2.0 MG)
     Dates: start: 20100326
  4. CYCLOPHOSPHAMIDE [Suspect]
     Indication: PERIPHERAL T-CELL LYMPHOMA UNSPECIFIED
     Dosage: DAY 1
     Dates: start: 20100326
  5. PREDNISONE [Suspect]
     Indication: PERIPHERAL T-CELL LYMPHOMA UNSPECIFIED
     Dosage: DAYS 1-5
     Dates: start: 20100326
  6. METHOTREXATE [Suspect]
     Indication: PERIPHERAL T-CELL LYMPHOMA UNSPECIFIED
     Dosage: DAY 1
     Route: 037
     Dates: start: 20100326
  7. ARA-C [Suspect]
     Indication: PERIPHERAL T-CELL LYMPHOMA UNSPECIFIED
     Dosage: DAY 1
     Route: 037
     Dates: start: 20100326
  8. DEXAMETHASONE [Suspect]
     Indication: PERIPHERAL T-CELL LYMPHOMA UNSPECIFIED
     Dosage: DAY 1
     Dates: start: 20100326
  9. DOLESTIN [Concomitant]
  10. BBK 8 [Concomitant]

REACTIONS (2)
  - LUNG INFECTION PSEUDOMONAL [None]
  - PYREXIA [None]
